FAERS Safety Report 5156342-8 (Version None)
Quarter: 2006Q4

REPORT INFORMATION
  Report Type: 
  Country: None (occurrence: None)
  Receive Date: 20061122
  Receipt Date: 20061114
  Transmission Date: 20070319
  Serious: Yes (Other)
  Sender: FDA-Public Use
  Company Number: IT-GLAXOSMITHKLINE-B0447492A

PATIENT
  Age: 38 Year
  Sex: Female

DRUGS (2)
  1. AMOXICILLIN + CLAVULANATE POTASSIUM [Suspect]
     Dosage: 1G UNKNOWN
     Route: 048
     Dates: start: 20060930, end: 20061003
  2. IBUPROFEN [Suspect]
     Route: 048
     Dates: start: 20060930, end: 20061003

REACTIONS (1)
  - CHOLESTASIS [None]
